FAERS Safety Report 7632720-X (Version None)
Quarter: 2011Q3

REPORT INFORMATION
  Report Type: 
  Country: None (occurrence: None)
  Receive Date: 20110725
  Receipt Date: 20101207
  Transmission Date: 20111222
  Serious: No
  Sender: FDA-Public Use
  Company Number: US-BRISTOL-MYERS SQUIBB COMPANY-15427594

PATIENT
  Age: 88 Year
  Sex: Female

DRUGS (1)
  1. COUMADIN [Suspect]
     Indication: THROMBOSIS

REACTIONS (2)
  - PAIN IN EXTREMITY [None]
  - INTERNATIONAL NORMALISED RATIO FLUCTUATION [None]
